FAERS Safety Report 25906313 (Version 1)
Quarter: 2025Q4

REPORT INFORMATION
  Report Type: Spontaneous
  Country: CO (occurrence: CO)
  Receive Date: 20251010
  Receipt Date: 20251010
  Transmission Date: 20260118
  Serious: Yes (Life-Threatening, Hospitalization, Other)
  Sender: BAYER HEALTHCARE PHARMACEUTICALS INC.
  Company Number: CO-BAYER-2025A132884

PATIENT
  Age: 82 Year
  Sex: Female

DRUGS (1)
  1. ULTRAVIST [Suspect]
     Active Substance: IOPROMIDE
     Indication: Computerised tomogram abdomen
     Dosage: 70 ML, ONCE
     Dates: start: 20250925, end: 20250925

REACTIONS (12)
  - Anaphylactic reaction [None]
  - Atrial fibrillation [None]
  - Eyelid oedema [None]
  - Palatal oedema [None]
  - Stridor [None]
  - Wheezing [None]
  - Tachypnoea [None]
  - Abdominal pain upper [None]
  - Hyperhidrosis [None]
  - Altered state of consciousness [None]
  - Rash [None]
  - Poor peripheral circulation [None]

NARRATIVE: CASE EVENT DATE: 20250925
